FAERS Safety Report 17705334 (Version 1)
Quarter: 2020Q2

REPORT INFORMATION
  Report Type: Spontaneous
  Country: CN (occurrence: CN)
  Receive Date: 20200424
  Receipt Date: 20200424
  Transmission Date: 20200714
  Serious: Yes (Death, Hospitalization)
  Sender: FDA-Public Use
  Company Number: CN-SGP-000018

PATIENT
  Age: 58 Year

DRUGS (3)
  1. MYCOPHENOLATE MOFETIL. [Suspect]
     Active Substance: MYCOPHENOLATE MOFETIL
     Indication: PROPHYLAXIS AGAINST TRANSPLANT REJECTION
     Route: 065
  2. METHYLPREDNISOLONE. [Suspect]
     Active Substance: METHYLPREDNISOLONE
     Indication: CORONAVIRUS INFECTION
     Dosage: 80MG DAILY
     Route: 065
  3. LOPINAVIR,RITONAVIR [Suspect]
     Active Substance: LOPINAVIR\RITONAVIR
     Indication: CORONAVIRUS INFECTION
     Dosage: 200 MG THRICE DAILY, ORALLY
     Route: 048

REACTIONS (7)
  - Nosocomial infection [Unknown]
  - Drug effective for unapproved indication [Unknown]
  - Cardiac failure [Fatal]
  - Respiratory failure [Fatal]
  - Condition aggravated [Unknown]
  - Hypoxia [Unknown]
  - Renal failure [Fatal]
